FAERS Safety Report 5136414-4 (Version None)
Quarter: 2006Q4

REPORT INFORMATION
  Report Type: 
  Country: None (occurrence: None)
  Receive Date: 20061020
  Receipt Date: 20061006
  Transmission Date: 20070319
  Serious: Yes (Other)
  Sender: FDA-Public Use
  Company Number: 2006RR-04039

PATIENT
  Age: 86 Year
  Sex: Male
  Weight: 73 kg

DRUGS (4)
  1. ENALAPRIL MALEATE [Suspect]
     Indication: HYPERTENSION
     Dosage: ORAL
     Route: 048
     Dates: start: 19970101, end: 20060501
  2. ATORVASTATIN CALCIUM [Concomitant]
  3. BENDROFLUAZIDE (BENDROFLUMETHIAZIDE) [Concomitant]
  4. MINOXIDIL [Concomitant]

REACTIONS (1)
  - WHEEZING [None]
